FAERS Safety Report 25498784 (Version 1)
Quarter: 2025Q3

REPORT INFORMATION
  Report Type: Spontaneous
  Country: US (occurrence: US)
  Receive Date: 20250701
  Receipt Date: 20250701
  Transmission Date: 20251021
  Serious: Yes (Other)
  Sender: DR REDDYS
  Company Number: None

PATIENT
  Age: 44 Year
  Sex: Female

DRUGS (3)
  1. TACROLIMUS [Suspect]
     Active Substance: TACROLIMUS
     Indication: Immunosuppressant drug therapy
     Dates: start: 2009
  2. MYCOPHENOLATE MOFETIL [Suspect]
     Active Substance: MYCOPHENOLATE MOFETIL
     Indication: Immunosuppressant drug therapy
     Dates: start: 2009
  3. PREDNISONE [Suspect]
     Active Substance: PREDNISONE
     Indication: Immunosuppressant drug therapy
     Dates: start: 2009

REACTIONS (4)
  - Post transplant lymphoproliferative disorder [Recovered/Resolved]
  - Plasmacytoma [Recovered/Resolved]
  - Acute kidney injury [Recovered/Resolved]
  - Transplant rejection [Recovered/Resolved]

NARRATIVE: CASE EVENT DATE: 20180101
